FAERS Safety Report 5555995-X (Version None)
Quarter: 2007Q4

REPORT INFORMATION
  Report Type: 
  Country: None (occurrence: None)
  Receive Date: 20071213
  Receipt Date: 20071205
  Transmission Date: 20080405
  Serious: Yes (Other)
  Sender: FDA-Public Use
  Company Number: US-PFIZER INC-2007102132

PATIENT
  Sex: Female
  Weight: 72.6 kg

DRUGS (9)
  1. LIPITOR [Suspect]
     Indication: BLOOD CHOLESTEROL
     Route: 048
  2. PLAVIX [Concomitant]
  3. METFORMIN HCL [Concomitant]
  4. CLOPIDOGREL [Concomitant]
  5. GLUCOTROL [Concomitant]
  6. AGGRENOX [Concomitant]
  7. HYDROCHLOROTHIAZIDE [Concomitant]
  8. ADALAT [Concomitant]
  9. DITROPAN [Concomitant]

REACTIONS (4)
  - CEREBROVASCULAR ACCIDENT [None]
  - FATIGUE [None]
  - MUSCULAR WEAKNESS [None]
  - POOR QUALITY SLEEP [None]
